FAERS Safety Report 5029414-6 (Version None)
Quarter: 2006Q2

REPORT INFORMATION
  Report Type: 
  Country: None (occurrence: None)
  Receive Date: 20060613
  Receipt Date: 20060531
  Transmission Date: 20061013
  Serious: Yes (Hospitalization)
  Sender: FDA-Public Use
  Company Number: 2006070759

PATIENT
  Age: 54 Year
  Sex: Female

DRUGS (7)
  1. METHYLPREDNISOLONE SODIUM SUCCINATE [Suspect]
     Indication: ASTHMA
     Dosage: 40 MG (40 MG, 1 IN 1 D), INTRAVENOUS
     Route: 042
     Dates: start: 20060506, end: 20060506
  2. SYNTOPHYLLIN (AMINOPHYLLLINE) [Suspect]
     Indication: ASTHMA
     Dosage: (1 IN 1D), INTRAVENOUS
     Route: 042
     Dates: start: 20060506, end: 20060506
  3. AFRO-FERROUS SULFATE (FERROUS SULFATE) [Concomitant]
  4. CLONAZEPAM [Concomitant]
  5. AMBROXOL (AMBROXOL) [Concomitant]
  6. TIOTROPIUM (TIOTROPIUM) [Concomitant]
  7. SALMETEROL (SALMETEROL) [Concomitant]

REACTIONS (6)
  - CHILLS [None]
  - DYSPNOEA [None]
  - PHARMACEUTICAL PRODUCT COMPLAINT [None]
  - POOR QUALITY DRUG ADMINISTERED [None]
  - PYREXIA [None]
  - TREMOR [None]
